FAERS Safety Report 19884596 (Version 1)
Quarter: 2021Q3

REPORT INFORMATION
  Report Type: Spontaneous
  Country: US (occurrence: US)
  Receive Date: 20210926
  Receipt Date: 20210926
  Transmission Date: 20211014
  Serious: Yes (Hospitalization)
  Sender: FDA-Public Use
  Company Number: None

PATIENT
  Sex: Male

DRUGS (15)
  1. ASPIRIN. [Concomitant]
     Active Substance: ASPIRIN
  2. CLOPIDOGREL [Concomitant]
     Active Substance: CLOPIDOGREL BISULFATE
  3. IBRANCE [Suspect]
     Active Substance: PALBOCICLIB
     Indication: BREAST CANCER MALE
     Dosage: 125MG QDX21D, 7DOFF ORAL
     Route: 048
     Dates: start: 20210904
  4. TAMOXIFEN [Concomitant]
     Active Substance: TAMOXIFEN
  5. PRSOCAR [Concomitant]
  6. CITRIC ACID?SODIUM CITRATE [Concomitant]
  7. IISINOPRIL [Concomitant]
  8. NIFEDIPINE. [Concomitant]
     Active Substance: NIFEDIPINE
  9. IASIX [Concomitant]
  10. MINOCIN [Concomitant]
     Active Substance: MINOCYCLINE HYDROCHLORIDE
  11. OMEPRAZOLE. [Concomitant]
     Active Substance: OMEPRAZOLE
  12. PREDNISONE. [Concomitant]
     Active Substance: PREDNISONE
  13. BUDESONIDE. [Concomitant]
     Active Substance: BUDESONIDE
  14. FLUTICASONE. [Concomitant]
     Active Substance: FLUTICASONE
  15. NEBIVOLOL. [Concomitant]
     Active Substance: NEBIVOLOL

REACTIONS (3)
  - Fatigue [None]
  - Dizziness [None]
  - Gastrointestinal disorder [None]
